FAERS Safety Report 14614345 (Version 1)
Quarter: 2018Q1

REPORT INFORMATION
  Report Type: Spontaneous
  Country: AU (occurrence: AU)
  Receive Date: 20180308
  Receipt Date: 20180308
  Transmission Date: 20180509
  Serious: Yes (Other)
  Sender: FDA-Public Use
  Company Number: AU-NAPPMUNDI-GBR-2018-0053715

PATIENT
  Age: 69 Year
  Sex: Male

DRUGS (1)
  1. TARGIN [Suspect]
     Active Substance: NALOXONE HYDROCHLORIDE\OXYCODONE HYDROCHLORIDE
     Indication: PAIN
     Dosage: 20/10 MG (10/5 MG TWICE DAILY)
     Route: 048
     Dates: start: 20180212, end: 20180222

REACTIONS (5)
  - Suicidal ideation [Recovered/Resolved]
  - Loss of consciousness [Recovered/Resolved]
  - Paranoia [Recovered/Resolved]
  - Therapy cessation [Unknown]
  - Panic attack [Recovered/Resolved]

NARRATIVE: CASE EVENT DATE: 20180214
